FAERS Safety Report 14560936 (Version 1)
Quarter: 2018Q1

REPORT INFORMATION
  Report Type: Spontaneous
  Country: CH (occurrence: CH)
  Receive Date: 20180222
  Receipt Date: 20180222
  Transmission Date: 20180509
  Serious: Yes (Other)
  Sender: FDA-Public Use
  Company Number: CH-ROCHE-2074986

PATIENT
  Age: 54 Year
  Sex: Female

DRUGS (6)
  1. HERCEPTIN [Suspect]
     Active Substance: TRASTUZUMAB
     Indication: BREAST CANCER FEMALE
     Dosage: 3 DOSES AT 3 WEEKS INTERVAL (SPECIALITY AND DOSE UNAVAILABLE). RESUMED ON /OCT/2016
     Route: 041
     Dates: start: 201604, end: 20160603
  2. TAXOTERE [Suspect]
     Active Substance: DOCETAXEL
     Indication: BREAST CANCER FEMALE
     Route: 041
     Dates: start: 201604, end: 20160603
  3. PERJETA [Suspect]
     Active Substance: PERTUZUMAB
     Indication: BREAST CANCER FEMALE
     Route: 041
     Dates: start: 201604, end: 20160603
  4. EPIRUBICIN [Suspect]
     Active Substance: EPIRUBICIN
     Indication: BREAST CANCER FEMALE
     Dosage: 3 DOSES AT 3 WEEKS INTERVAL
     Route: 041
     Dates: start: 20160211, end: 201604
  5. FLUOROURACILE [Suspect]
     Active Substance: FLUOROURACIL
     Indication: BREAST CANCER FEMALE
     Dosage: 3 DOSES AT 3 WEEKS INTERVAL
     Route: 041
     Dates: start: 20160211, end: 201604
  6. CYCLOPHOSPHAMIDE. [Suspect]
     Active Substance: CYCLOPHOSPHAMIDE
     Indication: BREAST CANCER FEMALE
     Dosage: 3 DOSES AT 3 WEEKS INTERVAL
     Route: 041
     Dates: start: 20160211, end: 201604

REACTIONS (4)
  - Autoscopy [Recovered/Resolved]
  - Diarrhoea [Recovered/Resolved]
  - Terminal state [Recovered/Resolved]
  - Palpitations [Recovered/Resolved]

NARRATIVE: CASE EVENT DATE: 201606
